FAERS Safety Report 15023110 (Version 1)
Quarter: 2018Q2

REPORT INFORMATION
  Report Type: Spontaneous
  Country: RU (occurrence: RU)
  Receive Date: 20180618
  Receipt Date: 20180618
  Transmission Date: 20180711
  Serious: Yes (Hospitalization)
  Sender: FDA-Public Use
  Company Number: RU-SA-2018SA140203

PATIENT
  Age: 36 Month
  Sex: Male
  Weight: 19 kg

DRUGS (1)
  1. ZODAC [Suspect]
     Active Substance: CETIRIZINE HYDROCHLORIDE
     Indication: ACCIDENTAL EXPOSURE TO PRODUCT BY CHILD
     Dosage: 15 ML, 1X
     Route: 048
     Dates: start: 20180417, end: 20180417

REACTIONS (3)
  - Pallor [Recovering/Resolving]
  - Somnolence [Recovering/Resolving]
  - Accidental exposure to product by child [Unknown]

NARRATIVE: CASE EVENT DATE: 20180417
